FAERS Safety Report 5167856-9 (Version None)
Quarter: 2006Q4

REPORT INFORMATION
  Report Type: 
  Country: None (occurrence: None)
  Receive Date: 20061208
  Receipt Date: 20061123
  Transmission Date: 20070319
  Serious: Yes (Other)
  Sender: FDA-Public Use
  Company Number: PHNU2006DE03958

PATIENT
  Sex: Female

DRUGS (4)
  1. BRISERIN-N MITE [Suspect]
     Dosage: 1 DF, PRN
  2. ASS 100 PROTECT [Concomitant]
  3. EUNOVA [Concomitant]
  4. BRISERIN-N [Suspect]
     Dosage: 1 DF, PRN

REACTIONS (7)
  - ALOPECIA [None]
  - DRUG HYPERSENSITIVITY [None]
  - PHOTOPHOBIA [None]
  - PRURITUS [None]
  - RASH PUSTULAR [None]
  - STENT PLACEMENT [None]
  - VISUAL ACUITY REDUCED [None]
